FAERS Safety Report 14583577 (Version 1)
Quarter: 2018Q1

REPORT INFORMATION
  Report Type: Spontaneous
  Country: FR (occurrence: FR)
  Receive Date: 20180228
  Receipt Date: 20180228
  Transmission Date: 20180509
  Serious: Yes (Hospitalization)
  Sender: FDA-Public Use
  Company Number: FR-OTSUKA-DJ20092987

PATIENT

DRUGS (4)
  1. TERCIAN [Concomitant]
     Active Substance: CYAMEMAZINE
     Indication: SLEEP DISORDER
     Route: 065
  2. TERCIAN [Concomitant]
     Active Substance: CYAMEMAZINE
     Indication: DRUG ABUSE
  3. TRANXENE [Suspect]
     Active Substance: CLORAZEPATE DIPOTASSIUM
     Route: 065
  4. ABILIFY [Suspect]
     Active Substance: ARIPIPRAZOLE
     Indication: PERSECUTORY DELUSION
     Route: 048

REACTIONS (2)
  - Dementia [Not Recovered/Not Resolved]
  - Confusional state [Not Recovered/Not Resolved]

NARRATIVE: CASE EVENT DATE: 200905
